FAERS Safety Report 18843028 (Version 1)
Quarter: 2021Q1

REPORT INFORMATION
  Report Type: Spontaneous
  Country: DE (occurrence: DE)
  Receive Date: 20210203
  Receipt Date: 20210203
  Transmission Date: 20210419
  Serious: No
  Sender: FDA-Public Use
  Company Number: DE-EXELIXIS-CABO-19026112

PATIENT
  Age: 74 Year
  Sex: Male
  Weight: 73 kg

DRUGS (4)
  1. CABOMETYX [Suspect]
     Active Substance: CABOZANTINIB S-MALATE
     Indication: METASTATIC RENAL CELL CARCINOMA
     Dosage: 60 MG
     Route: 048
     Dates: start: 20191030, end: 20191110
  2. L?THYROXIN [Concomitant]
     Active Substance: LEVOTHYROXINE SODIUM
     Indication: HYPOTHYROIDISM
     Dosage: 100 UG
     Route: 048
     Dates: start: 20190919
  3. CANDESARTAN. [Concomitant]
     Active Substance: CANDESARTAN
     Indication: HYPERTENSION
     Dosage: 16 MG
     Route: 048
     Dates: start: 2010
  4. ACETYLSALICYLIC ACID [Concomitant]
     Active Substance: ASPIRIN
     Indication: CARDIOVASCULAR EVENT PROPHYLAXIS
     Dosage: 100 MG
     Route: 048
     Dates: start: 2010

REACTIONS (4)
  - Somnolence [Not Recovered/Not Resolved]
  - Disorientation [Not Recovered/Not Resolved]
  - Sopor [Not Recovered/Not Resolved]
  - Gait disturbance [Not Recovered/Not Resolved]

NARRATIVE: CASE EVENT DATE: 20191109
